FAERS Safety Report 13145643 (Version 1)
Quarter: 2017Q1

REPORT INFORMATION
  Report Type: Spontaneous
  Country: GB (occurrence: GB)
  Receive Date: 20170124
  Receipt Date: 20170124
  Transmission Date: 20170428
  Serious: Yes (Hospitalization)
  Sender: FDA-Public Use
  Company Number: GB-B. BRAUN MEDICAL INC.-1062345

PATIENT
  Age: 47 Year
  Sex: Male

DRUGS (9)
  1. SMOFLIPID [Suspect]
     Active Substance: FISH OIL\MEDIUM-CHAIN TRIGLYCERIDES\OLIVE OIL\SOYBEAN OIL
     Route: 042
  2. VITALIPID [Suspect]
     Active Substance: ERGOCALCIFEROL\PHYTONADIONE\RETINOL\TOCOPHEROL
     Route: 042
  3. AMINOVEN [Suspect]
     Active Substance: AMINO ACIDS
     Route: 042
  4. ADDIPHOS [Suspect]
     Active Substance: POTASSIUM HYDROXIDE\POTASSIUM PHOSPHATE, DIBASIC\SODIUM PHOSPHATE, DIBASIC, ANHYDROUS
     Route: 042
  5. GLYCOPHOS [Suspect]
     Active Substance: SODIUM GLYCEROPHOSPHATE ANHYDROUS
     Route: 042
  6. WATER FOR INJECTION [Suspect]
     Active Substance: WATER
     Route: 042
  7. POTASSIUM CHLORIDE FOR INJECTION CONCENTRATE USP 0264-1940-20 [Suspect]
     Active Substance: POTASSIUM CHLORIDE
     Indication: PARENTERAL NUTRITION
     Route: 042
  8. GLUCOSE [Suspect]
     Active Substance: DEXTROSE
     Route: 042
  9. SOLUVIT N [Suspect]
     Active Substance: VITAMINS
     Route: 042

REACTIONS (2)
  - Malaise [Unknown]
  - Sepsis [Unknown]
